FAERS Safety Report 7202133-3 (Version None)
Quarter: 2010Q4

REPORT INFORMATION
  Report Type: 
  Country: None (occurrence: None)
  Receive Date: 20101229
  Receipt Date: 20101215
  Transmission Date: 20110411
  Serious: Yes (Hospitalization)
  Sender: FDA-Public Use
  Company Number: PHFR2010IE04826

PATIENT
  Sex: Male

DRUGS (2)
  1. CLOZARIL [Suspect]
     Indication: SCHIZOPHRENIA
     Dosage: UNK
     Route: 048
     Dates: start: 19980618
  2. CLOZARIL [Suspect]
     Dosage: UNK
     Route: 048

REACTIONS (5)
  - ANKLE FRACTURE [None]
  - CELLULITIS [None]
  - FALL [None]
  - SWELLING [None]
  - THROMBOSIS [None]
